FAERS Safety Report 8116015-6 (Version None)
Quarter: 2012Q1

REPORT INFORMATION
  Report Type: 
  Country: None (occurrence: None)
  Receive Date: 20120206
  Receipt Date: 20120129
  Transmission Date: 20120608
  Serious: Yes (Other)
  Sender: FDA-Public Use
  Company Number: US-ABBOTT-12P-163-0899494-00

PATIENT
  Sex: Female
  Weight: 74.91 kg

DRUGS (10)
  1. UNKNOWN ANTIBIOTICS [Concomitant]
     Indication: SURGERY
     Dates: start: 20111101
  2. METHOTREXATE [Concomitant]
     Indication: RHEUMATOID ARTHRITIS
  3. HUMIRA [Suspect]
     Dates: start: 20120124
  4. HUMIRA [Suspect]
     Indication: RHEUMATOID ARTHRITIS
     Dates: start: 20050101, end: 20110901
  5. FOLIC ACID [Concomitant]
     Indication: VITAMIN SUPPLEMENTATION
  6. PREDNISONE [Concomitant]
     Indication: RHEUMATOID ARTHRITIS
  7. CALTRATE [Concomitant]
     Indication: MINERAL SUPPLEMENTATION
  8. ARAVIA [Concomitant]
     Indication: RHEUMATOID ARTHRITIS
  9. UNKNOWN ANTIBIOTICS [Concomitant]
     Indication: ANTIBIOTIC PROPHYLAXIS
     Route: 042
     Dates: start: 20111101, end: 20111101
  10. VITAMIN D [Concomitant]
     Indication: VITAMIN SUPPLEMENTATION

REACTIONS (9)
  - SINUSITIS [None]
  - MALAISE [None]
  - POST PROCEDURAL INFECTION [None]
  - RHEUMATOID NODULE [None]
  - INFLUENZA LIKE ILLNESS [None]
  - ERYTHEMA [None]
  - ARTHRITIS INFECTIVE [None]
  - LOCALISED INFECTION [None]
  - PAIN IN EXTREMITY [None]
